FAERS Safety Report 9833086 (Version 2)
Quarter: 2014Q1

REPORT INFORMATION
  Report Type: Spontaneous
  Country: US (occurrence: US)
  Receive Date: 20140121
  Receipt Date: 20140121
  Transmission Date: 20141002
  Serious: Yes (Hospitalization)
  Sender: FDA-Public Use
  Company Number: US-B.I. PHARMACEUTICALS,INC./RIDGEFIELD-2013-BI-23863BP

PATIENT
  Sex: Male
  Weight: 80.74 kg

DRUGS (6)
  1. PRADAXA [Suspect]
     Indication: ATRIAL FIBRILLATION
     Dosage: 300 MG
     Route: 048
     Dates: start: 20120513, end: 20120928
  2. AMIODARONE [Concomitant]
     Indication: ATRIAL FIBRILLATION
     Dosage: 200 MG
     Route: 048
  3. LEVOTHYROXINE [Concomitant]
     Dosage: 200 MCG
     Route: 048
     Dates: start: 20120501
  4. LISINOPRIL [Concomitant]
     Dosage: 5 MG
     Route: 048
  5. METOPROLOL TARTRATE [Concomitant]
     Dosage: 50 MG
     Route: 048
  6. FLOMAX [Concomitant]
     Dosage: 0.4 MG
     Route: 048

REACTIONS (3)
  - Upper gastrointestinal haemorrhage [Unknown]
  - Anaemia [Unknown]
  - Blood urea increased [Unknown]
